FAERS Safety Report 5325111-8 (Version None)
Quarter: 2007Q2

REPORT INFORMATION
  Report Type: 
  Country: None (occurrence: None)
  Receive Date: 20070511
  Receipt Date: 20070511
  Transmission Date: 20071010
  Serious: Yes (Life-Threatening, Hospitalization)
  Sender: FDA-Public Use
  Company Number: None

PATIENT
  Age: 53 Year
  Sex: Male

DRUGS (2)
  1. CEFTRIAXONE [Suspect]
     Indication: UPPER RESPIRATORY TRACT INFECTION
     Dosage: 1000MG   ONCE   IM
     Route: 030
     Dates: start: 20070503, end: 20070503
  2. AZITHROMYCIN [Suspect]
     Dosage: 500MG  ONCE  PO
     Route: 048
     Dates: start: 20070503, end: 20070503

REACTIONS (2)
  - ANAPHYLACTIC REACTION [None]
  - RASH [None]
